FAERS Safety Report 7525298-2 (Version None)
Quarter: 2011Q2

REPORT INFORMATION
  Report Type: 
  Country: None (occurrence: None)
  Receive Date: 20110606
  Receipt Date: 20110526
  Transmission Date: 20111010
  Serious: Yes (Death, Life-Threatening, Hospitalization)
  Sender: FDA-Public Use
  Company Number: CH-GENZYME-CLOF-1001616

PATIENT
  Sex: Male
  Weight: 57 kg

DRUGS (7)
  1. NEXIUM [Concomitant]
     Indication: PROPHYLAXIS
     Dosage: 40 MG, UNK
     Route: 048
     Dates: start: 20110412, end: 20110426
  2. CYTARABINE [Suspect]
     Indication: ACUTE MYELOID LEUKAEMIA
     Dosage: UNK, 3320 MG, INDUCTION CYCLE 2
     Route: 042
     Dates: start: 20110412, end: 20110417
  3. AMSACRINE [Suspect]
     Indication: ACUTE MYELOID LEUKAEMIA
     Dosage: UNK, 200 MG, INDUCTION CYCLE 2
     Route: 042
     Dates: start: 20110415, end: 20110419
  4. SOLU-MEDROL [Concomitant]
     Indication: PROPHYLAXIS OF NAUSEA AND VOMITING
     Dosage: 125 MG, UNK
     Route: 042
     Dates: start: 20110412, end: 20110419
  5. EVOLTRA [Suspect]
     Indication: ACUTE MYELOID LEUKAEMIA
     Dosage: 16.6 MG,  INDUCTION CYCLE 2
     Route: 042
     Dates: start: 20110412, end: 20110416
  6. ALLOPURINOL [Concomitant]
     Indication: PROPHYLAXIS
     Dosage: 300 MG, UNK
     Route: 048
     Dates: start: 20110412, end: 20110418
  7. ACTRAPID [Concomitant]
     Indication: DIABETES MELLITUS
     Dosage: UNK, ON DEMAND PRN
     Route: 042
     Dates: start: 20110412, end: 20110426

REACTIONS (6)
  - PULMONARY HAEMORRHAGE [None]
  - HYPERGLYCAEMIA [None]
  - SYNCOPE [None]
  - BACTERAEMIA [None]
  - NEUTROPENIC COLITIS [None]
  - TRAUMATIC LUNG INJURY [None]
